FAERS Safety Report 23141271 (Version 1)
Quarter: 2023Q4

REPORT INFORMATION
  Report Type: Spontaneous
  Country: US (occurrence: US)
  Receive Date: 20231103
  Receipt Date: 20231103
  Transmission Date: 20240110
  Serious: Yes (Hospitalization)
  Sender: FDA-Public Use
  Company Number: US-EPICPHARMA-US-2023EPCLIT01566

PATIENT
  Age: 71 Year
  Sex: Female

DRUGS (2)
  1. SODIUM NITROPRUSSIDE [Suspect]
     Active Substance: SODIUM NITROPRUSSIDE
     Indication: Cardiac failure chronic
     Dosage: 0.25-3 MCG/ KG/MIN
     Route: 065
  2. MILRINONE [Concomitant]
     Active Substance: MILRINONE
     Indication: Product used for unknown indication
     Route: 065

REACTIONS (3)
  - Mental status changes [Unknown]
  - Toxicity to various agents [Unknown]
  - Blood cyanide increased [Unknown]
